FAERS Safety Report 17855103 (Version 1)
Quarter: 2020Q2

REPORT INFORMATION
  Report Type: Spontaneous
  Country: US (occurrence: US)
  Receive Date: 20200602
  Receipt Date: 20200602
  Transmission Date: 20200714
  Serious: Yes (Hospitalization)
  Sender: FDA-Public Use
  Company Number: None

PATIENT
  Sex: Male

DRUGS (21)
  1. CYCLOSPORINE MODIFIED [Suspect]
     Active Substance: CYCLOSPORINE
     Indication: RENAL TRANSPLANT
     Route: 048
     Dates: start: 20200304
  2. ANTACID [Concomitant]
     Active Substance: ALUMINUM HYDROXIDE\CALCIUM CARBONATE\DIMETHICONE\MAGNESIUM HYDROXIDE
  3. LATANOPROST. [Concomitant]
     Active Substance: LATANOPROST
  4. LOSARTAN. [Concomitant]
     Active Substance: LOSARTAN
  5. ROSUVASTATIN. [Concomitant]
     Active Substance: ROSUVASTATIN
  6. SPIRONOLACT [Concomitant]
     Active Substance: SPIRONOLACTONE
  7. TORSEMIDE. [Concomitant]
     Active Substance: TORSEMIDE
  8. VIT D [Concomitant]
     Active Substance: VITAMIN D NOS
  9. AZATHIOPRINE. [Concomitant]
     Active Substance: AZATHIOPRINE
  10. CETRIZINE [Concomitant]
     Active Substance: CETIRIZINE HYDROCHLORIDE
  11. VITAMIN D3 [Concomitant]
     Active Substance: CHOLECALCIFEROL
  12. CALCITROL [Concomitant]
  13. CARVEDILOL. [Concomitant]
     Active Substance: CARVEDILOL
  14. FUROSEMIDE. [Concomitant]
     Active Substance: FUROSEMIDE
  15. MINOXIDIL. [Concomitant]
     Active Substance: MINOXIDIL
  16. FUROSUL [Concomitant]
  17. NIFEDIPINE. [Concomitant]
     Active Substance: NIFEDIPINE
  18. TOUJEO [Concomitant]
     Active Substance: INSULIN GLARGINE
  19. CYCLOSPORINE  100MG [Suspect]
     Active Substance: CYCLOSPORINE
     Indication: RENAL TRANSPLANT
     Route: 048
     Dates: start: 20200304
  20. GUAFACINE [Concomitant]
  21. PRAMIPEXOLE. [Concomitant]
     Active Substance: PRAMIPEXOLE

REACTIONS (1)
  - Fluid overload [None]
